FAERS Safety Report 24379384 (Version 1)
Quarter: 2024Q3

REPORT INFORMATION
  Report Type: Spontaneous
  Country: ES (occurrence: ES)
  Receive Date: 20240930
  Receipt Date: 20240930
  Transmission Date: 20241017
  Serious: Yes (Life-Threatening, Hospitalization)
  Sender: ELI LILLY AND CO
  Company Number: None

PATIENT
  Age: 65 Year
  Sex: Female

DRUGS (3)
  1. CYMBALTA [Interacting]
     Active Substance: DULOXETINE HYDROCHLORIDE
     Indication: Suicidal ideation
     Dosage: 3 BLISTERS, UNKNOWN
     Route: 048
     Dates: start: 20240224, end: 20240224
  2. LYRICA [Interacting]
     Active Substance: PREGABALIN
     Indication: Suicidal ideation
     Dosage: UNK UNK, SINGLE
     Route: 048
     Dates: start: 20240224, end: 20240224
  3. LORMETAZEPAM [Interacting]
     Active Substance: LORMETAZEPAM
     Indication: Suicidal ideation
     Dosage: UNK UNK, SINGLE
     Route: 048
     Dates: start: 20240224, end: 20240224

REACTIONS (3)
  - Depressed level of consciousness [Recovered/Resolved]
  - Subarachnoid haemorrhage [Recovered/Resolved with Sequelae]
  - Facial paralysis [Recovered/Resolved]

NARRATIVE: CASE EVENT DATE: 20240225
